FAERS Safety Report 5476723-2 (Version None)
Quarter: 2007Q4

REPORT INFORMATION
  Report Type: 
  Country: None (occurrence: None)
  Receive Date: 20071002
  Receipt Date: 20071002
  Transmission Date: 20080405
  Serious: No
  Sender: FDA-Public Use
  Company Number: None

PATIENT
  Sex: Male
  Weight: 108.8633 kg

DRUGS (2)
  1. BUDEPRION XL 300MG TEVA [Suspect]
     Indication: ANXIETY
     Dosage: 1 PILL DAILY PO
     Route: 048
     Dates: start: 20070905, end: 20070930
  2. BUDEPRION XL 300MG TEVA [Suspect]
     Indication: DEPRESSION
     Dosage: 1 PILL DAILY PO
     Route: 048
     Dates: start: 20070905, end: 20070930

REACTIONS (4)
  - ANXIETY [None]
  - DRUG INEFFECTIVE [None]
  - FEELING OF DESPAIR [None]
  - THERAPEUTIC RESPONSE UNEXPECTED WITH DRUG SUBSTITUTION [None]
